FAERS Safety Report 6083526-7 (Version None)
Quarter: 2009Q1

REPORT INFORMATION
  Report Type: 
  Country: None (occurrence: None)
  Receive Date: 20090219
  Receipt Date: 20090209
  Transmission Date: 20090719
  Serious: Yes (Other)
  Sender: FDA-Public Use
  Company Number: US-ROCHE-614036

PATIENT
  Sex: Female

DRUGS (1)
  1. INTERFERON ALFA [Suspect]
     Indication: DRUG USE FOR UNKNOWN INDICATION
     Dosage: DRUG: ROFERON, THREE SHOTS PER WEEK
     Route: 065
     Dates: start: 20020101

REACTIONS (1)
  - NON-HODGKIN'S LYMPHOMA [None]
